FAERS Safety Report 5816342-9 (Version None)
Quarter: 2008Q3

REPORT INFORMATION
  Report Type: 
  Country: None (occurrence: None)
  Receive Date: 20080721
  Receipt Date: 20071217
  Transmission Date: 20090109
  Serious: No
  Sender: FDA-Public Use
  Company Number: US-BAUSCH-2007BL004550

PATIENT
  Sex: Male

DRUGS (1)
  1. OPCON-A [Suspect]
     Route: 047
     Dates: start: 20071217, end: 20071217

REACTIONS (2)
  - MEDICATION ERROR [None]
  - MYDRIASIS [None]
